FAERS Safety Report 16937988 (Version 2)
Quarter: 2019Q4

REPORT INFORMATION
  Report Type: Spontaneous
  Country: DE (occurrence: DE)
  Receive Date: 20191018
  Receipt Date: 20191024
  Transmission Date: 20200122
  Serious: Yes (Hospitalization)
  Sender: FDA-Public Use
  Company Number: NVSC2019DE008468

PATIENT
  Sex: Male

DRUGS (1)
  1. RANITIDIN 300 - 1 A PHARMA [Suspect]
     Active Substance: RANITIDINE HYDROCHLORIDE
     Indication: HISTAMINE INTOLERANCE
     Dosage: UNK UNK, QD
     Route: 065

REACTIONS (4)
  - Dyspnoea [Unknown]
  - Vomiting [Unknown]
  - Nausea [Unknown]
  - Product use in unapproved indication [Unknown]
